FAERS Safety Report 9685805 (Version 6)
Quarter: 2014Q2

REPORT INFORMATION
  Report Type: Spontaneous
  Country: US (occurrence: US)
  Receive Date: 20131113
  Receipt Date: 20140611
  Transmission Date: 20141212
  Serious: Yes (Hospitalization, Other)
  Sender: FDA-Public Use
  Company Number: US-PFIZER INC-2013322682

PATIENT
  Age: 66 Year
  Sex: Male
  Weight: 108 kg

DRUGS (16)
  1. SUTENT [Suspect]
     Indication: RENAL CANCER METASTATIC
     Dosage: 50 MG, CYCLIC (DAILY 4 WEEKS ON, 2 WEEKS OFF)
     Route: 048
     Dates: start: 20090915
  2. SUTENT [Suspect]
     Dosage: 37.5 MG, CYCLIC (37.5 MG DAILY FOR TWO WEEKS + OFF TWO WEEKS)
     Route: 048
     Dates: start: 2009, end: 201312
  3. SUTENT [Suspect]
     Dosage: 50 MG, DAILY
     Route: 048
     Dates: start: 20140128, end: 201402
  4. SUTENT [Suspect]
     Dosage: 50 MG, 1X/DAY
     Route: 048
     Dates: start: 2014
  5. FENOFIBRATE [Concomitant]
     Dosage: UNK
  6. BUPROPION [Concomitant]
     Dosage: UNK
  7. DOXAZOSIN [Concomitant]
     Dosage: UNK
  8. MAGNESIUM [Concomitant]
     Dosage: UNK
  9. COLCRYS [Concomitant]
     Dosage: UNK
  10. ZOLOFT [Concomitant]
     Dosage: UNK
  11. ZOMETA [Concomitant]
     Dosage: UNK
     Route: 042
  12. ASPIRIN [Concomitant]
     Dosage: UNK
  13. BEXIN [Concomitant]
     Dosage: UNK
  14. CALCITROL [Concomitant]
     Dosage: UNK
  15. FAMOTIDIN [Concomitant]
     Dosage: UNK
  16. FLAGYL [Concomitant]
     Dosage: UNK

REACTIONS (8)
  - Rectal haemorrhage [Unknown]
  - Haemorrhage [Unknown]
  - Rectal haemorrhage [Recovered/Resolved]
  - Anal haemorrhage [Recovered/Resolved]
  - Haemorrhoids [Recovered/Resolved]
  - Hyperkeratosis [Unknown]
  - Bone disorder [Unknown]
  - Cyst [Unknown]
